FAERS Safety Report 7737110-7 (Version None)
Quarter: 2011Q3

REPORT INFORMATION
  Report Type: 
  Country: None (occurrence: None)
  Receive Date: 20110908
  Receipt Date: 20110907
  Transmission Date: 20111222
  Serious: Yes (Hospitalization)
  Sender: FDA-Public Use
  Company Number: CA-ABBOTT-11P-028-0851146-00

PATIENT
  Sex: Female
  Weight: 79.45 kg

DRUGS (2)
  1. METHOTREXATE [Concomitant]
     Indication: CROHN'S DISEASE
     Route: 048
     Dates: start: 20101201
  2. HUMIRA [Suspect]
     Indication: CROHN'S DISEASE
     Dosage: LOADING DOSE 80 MG
     Route: 058
     Dates: start: 20110823

REACTIONS (2)
  - INTESTINAL STENOSIS [None]
  - GASTROINTESTINAL PAIN [None]
